FAERS Safety Report 4967539-1 (Version None)
Quarter: 2006Q2

REPORT INFORMATION
  Report Type: 
  Country: None (occurrence: None)
  Receive Date: 20060410
  Receipt Date: 20060315
  Transmission Date: 20061013
  Serious: Yes (Hospitalization)
  Sender: FDA-Public Use
  Company Number: JP-JPN-A200600958

PATIENT
  Age: 9 Year
  Sex: Male
  Weight: 31 kg

DRUGS (2)
  1. ZOVIRAX [Suspect]
     Indication: HERPES ZOSTER
     Dosage: 306MG PER DAY
     Route: 048
     Dates: start: 20060310, end: 20060310
  2. CEFZON [Concomitant]
     Indication: INFECTION
     Dosage: 3G THREE TIMES PER DAY
     Route: 048
     Dates: start: 20060307, end: 20060310

REACTIONS (4)
  - ANAPHYLACTIC SHOCK [None]
  - ASTHENIA [None]
  - BLOOD PRESSURE DECREASED [None]
  - COLD SWEAT [None]
